FAERS Safety Report 21967318 (Version 1)
Quarter: 2023Q1

REPORT INFORMATION
  Report Type: Spontaneous
  Country: US (occurrence: None)
  Receive Date: 20230206
  Receipt Date: 20230206
  Transmission Date: 20230418
  Serious: No
  Sender: FDA-Public Use
  Company Number: None

PATIENT
  Age: 32 Year
  Sex: Female
  Weight: 72.9 kg

DRUGS (3)
  1. METHYLPHENIDATE HYDROCHLORIDE [Suspect]
     Active Substance: METHYLPHENIDATE HYDROCHLORIDE
     Indication: Attention deficit hyperactivity disorder
     Dosage: OTHER QUANTITY : 1 TABLET(S);?
     Route: 048
     Dates: start: 20230125, end: 20230206
  2. Birth control (generic) Concerta/methylphenidate [Concomitant]
  3. One a Day vitamin [Concomitant]

REACTIONS (5)
  - Quality of life decreased [None]
  - Product substitution issue [None]
  - Fatigue [None]
  - Lethargy [None]
  - Therapeutic product effect decreased [None]

NARRATIVE: CASE EVENT DATE: 20230126
